FAERS Safety Report 12114078 (Version 3)
Quarter: 2017Q1

REPORT INFORMATION
  Report Type: Report from Study
  Country: JP (occurrence: JP)
  Receive Date: 20160225
  Receipt Date: 20170124
  Transmission Date: 20170428
  Serious: Yes (Hospitalization)
  Sender: FDA-Public Use
  Company Number: JP-ASTELLAS-2010JP004037

PATIENT
  Age: 37 Year
  Sex: Female
  Weight: 58 kg

DRUGS (105)
  1. TACROLIMUS. [Suspect]
     Active Substance: TACROLIMUS
     Indication: LUPUS NEPHRITIS
     Route: 048
     Dates: start: 20071119, end: 20080518
  2. DIOVAN [Concomitant]
     Active Substance: VALSARTAN
     Route: 048
     Dates: start: 20120730, end: 20130128
  3. FERROMIA [Concomitant]
     Active Substance: FERROUS CITRATE
     Route: 048
     Dates: start: 20090709, end: 20091007
  4. TERNELIN [Concomitant]
     Active Substance: TIZANIDINE
     Indication: MUSCULOSKELETAL STIFFNESS
     Route: 048
     Dates: start: 20090514, end: 20090708
  5. TAKEPRON [Concomitant]
     Active Substance: LANSOPRAZOLE
     Indication: PRODUCT USED FOR UNKNOWN INDICATION
     Route: 048
     Dates: start: 20110516, end: 20150621
  6. KERATINAMIN [Concomitant]
     Active Substance: UREA
     Indication: DERMATITIS ATOPIC
     Dosage: UNK UNK, TWICE DAILY
     Route: 061
     Dates: start: 20120924, end: 20121104
  7. METHYLPREDNISOLONE. [Concomitant]
     Active Substance: METHYLPREDNISOLONE
     Indication: MENTAL IMPAIRMENT
     Route: 065
     Dates: start: 20130701, end: 20130703
  8. METHYLPREDNISOLONE. [Concomitant]
     Active Substance: METHYLPREDNISOLONE
     Route: 065
     Dates: start: 20130716, end: 20130718
  9. METHYLPREDNISOLONE. [Concomitant]
     Active Substance: METHYLPREDNISOLONE
     Route: 065
     Dates: start: 20130722, end: 20130724
  10. METHYLPREDNISOLONE. [Concomitant]
     Active Substance: METHYLPREDNISOLONE
     Route: 065
     Dates: start: 20150731, end: 20150802
  11. RISPERDAL [Concomitant]
     Active Substance: RISPERIDONE
     Indication: MENTAL IMPAIRMENT
     Dosage: UNK UNK, AS NEEDED AT ANXIETY
     Route: 048
     Dates: start: 20140526, end: 20140831
  12. LAXOBERON [Concomitant]
     Active Substance: SODIUM PICOSULFATE
     Indication: CONSTIPATION
     Dosage: AS NEEDED, AT BEDTIME
     Route: 048
     Dates: start: 20140630, end: 20140831
  13. ZYPREXA ZYDIS [Concomitant]
     Active Substance: OLANZAPINE
     Indication: MENTAL IMPAIRMENT
     Route: 048
     Dates: end: 20150810
  14. FERROMIA [Concomitant]
     Active Substance: FERROUS CITRATE
     Indication: IRON DEFICIENCY ANAEMIA
     Route: 048
     Dates: start: 20081030, end: 20090121
  15. ISODINE [Concomitant]
     Active Substance: POVIDONE-IODINE
     Indication: NASOPHARYNGITIS
     Dosage: UNK UNK, UNKNOWN FREQ.
     Route: 002
     Dates: start: 20081030, end: 20090610
  16. ATELEC [Concomitant]
     Active Substance: CILNIDIPINE
     Indication: HYPERTENSION
     Route: 048
     Dates: start: 20081127, end: 20090610
  17. CLARITH [Concomitant]
     Active Substance: CLARITHROMYCIN
     Indication: UPPER RESPIRATORY TRACT INFLAMMATION
     Route: 048
     Dates: start: 20090910, end: 20091007
  18. MAGMITT [Concomitant]
     Active Substance: MAGNESIUM OXIDE
     Indication: CONSTIPATION
     Route: 048
     Dates: start: 20140630, end: 20140831
  19. EBRANTIL                           /00631801/ [Concomitant]
     Active Substance: URAPIDIL
     Indication: PROPHYLAXIS
  20. ENDOXAN                            /00021101/ [Concomitant]
     Active Substance: CYCLOPHOSPHAMIDE
     Indication: MENTAL IMPAIRMENT
     Route: 065
     Dates: start: 20140311, end: 20140311
  21. TACROLIMUS. [Suspect]
     Active Substance: TACROLIMUS
     Route: 048
     Dates: start: 20080714, end: 20120527
  22. MEDROL [Suspect]
     Active Substance: METHYLPREDNISOLONE
     Route: 048
     Dates: start: 20080219, end: 20080713
  23. BONALON [Concomitant]
     Active Substance: ALENDRONATE SODIUM
     Route: 048
     Dates: start: 20140526
  24. ISODINE [Concomitant]
     Active Substance: POVIDONE-IODINE
     Indication: PROPHYLAXIS
     Dosage: UNK UNK, TWICE DAILY
     Route: 002
     Dates: start: 20111128, end: 20120624
  25. RINDERON VG [Concomitant]
     Active Substance: BETAMETHASONE VALERATE\GENTAMICIN SULFATE
     Indication: RASH
     Dosage: UNK UNK, THRICE DAILY
     Route: 061
     Dates: start: 20101227
  26. ALLELOCK [Concomitant]
     Active Substance: OLOPATADINE HYDROCHLORIDE
     Indication: DERMATITIS ATOPIC
     Route: 048
     Dates: start: 20121105, end: 20150621
  27. METHYLPREDNISOLONE. [Concomitant]
     Active Substance: METHYLPREDNISOLONE
     Indication: VISUAL FIELD DEFECT
     Route: 065
     Dates: start: 20130401, end: 20130401
  28. METHYLPREDNISOLONE. [Concomitant]
     Active Substance: METHYLPREDNISOLONE
     Route: 065
     Dates: start: 20130708, end: 20130710
  29. SENNOSIDE                          /00571901/ [Concomitant]
     Active Substance: SENNOSIDES A AND B
     Indication: CONSTIPATION PROPHYLAXIS
  30. QUETIAPINE. [Concomitant]
     Active Substance: QUETIAPINE
     Indication: MENTAL IMPAIRMENT
     Route: 048
     Dates: end: 20150806
  31. TACROLIMUS. [Suspect]
     Active Substance: TACROLIMUS
     Route: 048
     Dates: start: 20120625, end: 20120729
  32. TACROLIMUS. [Suspect]
     Active Substance: TACROLIMUS
     Route: 048
     Dates: start: 20120827, end: 20130226
  33. SELBEX [Concomitant]
     Active Substance: TEPRENONE
     Indication: GASTRITIS
     Route: 048
     Dates: end: 20090610
  34. DIOVAN [Concomitant]
     Active Substance: VALSARTAN
     Indication: HYPERTENSION
     Route: 048
     Dates: start: 20090806, end: 20100516
  35. LOXONIN [Concomitant]
     Active Substance: LOXOPROFEN SODIUM
     Indication: ARTHRITIS
     Dosage: UNK UNK, TWICE DAILY
     Route: 061
     Dates: start: 20090827, end: 20090902
  36. CLARITH [Concomitant]
     Active Substance: CLARITHROMYCIN
     Indication: NASOPHARYNGITIS
     Route: 048
     Dates: start: 20100125, end: 20100131
  37. MUCODYNE [Concomitant]
     Active Substance: CARBOCYSTEINE
     Indication: UPPER RESPIRATORY TRACT INFLAMMATION
     Route: 048
     Dates: start: 20090910, end: 20091007
  38. MUCODYNE [Concomitant]
     Active Substance: CARBOCYSTEINE
     Indication: NASOPHARYNGITIS
     Route: 048
     Dates: start: 20100125, end: 20100131
  39. OPISEZOL-CODEINE [Concomitant]
     Active Substance: HERBALS
     Indication: NASOPHARYNGITIS
     Route: 048
     Dates: start: 20100125, end: 20100131
  40. RINDERON VG [Concomitant]
     Active Substance: BETAMETHASONE VALERATE\GENTAMICIN SULFATE
     Indication: PROPHYLAXIS
     Dosage: UNK UNK, TWICE DAILY
     Route: 061
     Dates: start: 20130128, end: 20130320
  41. ALLELOCK [Concomitant]
     Active Substance: OLOPATADINE HYDROCHLORIDE
     Indication: PROPHYLAXIS
  42. PREDNISOLONE. [Concomitant]
     Active Substance: PREDNISOLONE
     Route: 048
     Dates: start: 20150330, end: 20150621
  43. UBRETID [Concomitant]
     Active Substance: DISTIGMINE BROMIDE
     Indication: PROPHYLAXIS
  44. PATANOL [Concomitant]
     Active Substance: OLOPATADINE HYDROCHLORIDE
     Indication: CONJUNCTIVITIS ALLERGIC
     Dosage: UNK UNK, FOURTH DAILY
     Route: 065
     Dates: start: 20141208, end: 20150209
  45. DAIPHEN [Concomitant]
     Active Substance: SULFAMETHOXAZOLE\TRIMETHOPRIM
     Indication: PROPHYLAXIS
     Route: 048
     Dates: start: 20150622
  46. LUNESTA [Concomitant]
     Active Substance: ESZOPICLONE
     Indication: PRODUCT USED FOR UNKNOWN INDICATION
     Route: 048
  47. ENDOXAN                            /00021101/ [Concomitant]
     Active Substance: CYCLOPHOSPHAMIDE
     Indication: MENTAL IMPAIRMENT
     Route: 065
     Dates: start: 20140409, end: 20140409
  48. TACROLIMUS. [Suspect]
     Active Substance: TACROLIMUS
     Route: 048
     Dates: start: 20080519, end: 20080713
  49. DIOVAN [Concomitant]
     Active Substance: VALSARTAN
     Indication: HYPERTENSION
     Route: 048
     Dates: start: 20080218, end: 20090415
  50. FERROMIA [Concomitant]
     Active Substance: FERROUS CITRATE
     Route: 048
     Dates: start: 20111003, end: 20120311
  51. ISODINE [Concomitant]
     Active Substance: POVIDONE-IODINE
     Dosage: UNK UNK, UNKNOWN FREQ.
     Route: 002
     Dates: start: 20161003
  52. RINDERON VG [Concomitant]
     Active Substance: BETAMETHASONE VALERATE\GENTAMICIN SULFATE
     Indication: DERMATITIS ATOPIC
     Dosage: UNK UNK, TWICE DAILY
     Route: 061
     Dates: start: 20120924, end: 20121104
  53. METHYLPREDNISOLONE. [Concomitant]
     Active Substance: METHYLPREDNISOLONE
     Indication: LUPUS NEPHRITIS
     Route: 065
     Dates: start: 20130325, end: 20130327
  54. PREDNISOLONE. [Concomitant]
     Active Substance: PREDNISOLONE
     Route: 048
     Dates: start: 20150223, end: 20150329
  55. PREDNISOLONE. [Concomitant]
     Active Substance: PREDNISOLONE
     Route: 048
     Dates: start: 20150827, end: 20150901
  56. UBRETID [Concomitant]
     Active Substance: DISTIGMINE BROMIDE
     Indication: MENTAL IMPAIRMENT
     Route: 048
     Dates: start: 20140308
  57. LEVOFLOXACIN. [Concomitant]
     Active Substance: LEVOFLOXACIN
     Indication: CONJUNCTIVITIS ALLERGIC
     Dosage: UNK UNK, THRICE DAILY
     Route: 065
     Dates: start: 20141201, end: 20150209
  58. QUETIAPINE. [Concomitant]
     Active Substance: QUETIAPINE
     Route: 048
     Dates: start: 20150819, end: 20150820
  59. ZYPREXA ZYDIS [Concomitant]
     Active Substance: OLANZAPINE
     Route: 048
  60. MEDROL [Suspect]
     Active Substance: METHYLPREDNISOLONE
     Route: 048
     Dates: start: 20080714, end: 20081126
  61. LOXONIN [Concomitant]
     Active Substance: LOXOPROFEN SODIUM
     Indication: ARTHRITIS
     Route: 048
     Dates: start: 20090827, end: 20090902
  62. MUCOSTA [Concomitant]
     Active Substance: REBAMIPIDE
     Indication: ARTHRITIS
     Route: 048
     Dates: start: 20090827, end: 20090902
  63. BIO-THREE [Concomitant]
     Active Substance: HERBALS
     Indication: DIARRHOEA
     Route: 048
     Dates: start: 20120526, end: 20120528
  64. PURSENNID                          /00142207/ [Concomitant]
     Active Substance: SENNOSIDES A AND B
     Indication: CONSTIPATION
     Route: 048
     Dates: start: 20120827, end: 20121104
  65. PREDNISOLONE. [Concomitant]
     Active Substance: PREDNISOLONE
     Route: 048
     Dates: start: 20140901, end: 20140928
  66. PREDNISOLONE. [Concomitant]
     Active Substance: PREDNISOLONE
     Route: 048
     Dates: start: 20150622, end: 20150726
  67. PREDNISOLONE. [Concomitant]
     Active Substance: PREDNISOLONE
     Route: 048
     Dates: start: 20150803, end: 20150826
  68. PREDNISOLONE. [Concomitant]
     Active Substance: PREDNISOLONE
     Route: 048
     Dates: start: 20150902
  69. SENNOSIDE                          /00571901/ [Concomitant]
     Active Substance: SENNOSIDES A AND B
     Indication: CONSTIPATION
     Dosage: UNK UNK, AS NEEDED
     Route: 048
     Dates: start: 20140116
  70. EBRANTIL                           /00631801/ [Concomitant]
     Active Substance: URAPIDIL
     Indication: MENTAL IMPAIRMENT
     Route: 048
     Dates: start: 20140308
  71. PREDONINE [Concomitant]
     Active Substance: PREDNISOLONE
     Indication: CONJUNCTIVITIS ALLERGIC
     Dosage: UNK UNK, TWICE TO THRICE DAILY
     Route: 061
     Dates: start: 20141208, end: 20150209
  72. NEXIUM [Concomitant]
     Active Substance: ESOMEPRAZOLE MAGNESIUM
     Indication: PRODUCT USED FOR UNKNOWN INDICATION
     Route: 048
     Dates: start: 20150622
  73. OLOPATADINE [Concomitant]
     Active Substance: OLOPATADINE
     Indication: PROPHYLAXIS
     Route: 048
     Dates: start: 20150622
  74. TACROLIMUS. [Suspect]
     Active Substance: TACROLIMUS
     Route: 048
     Dates: start: 20120528, end: 20120624
  75. TACROLIMUS. [Suspect]
     Active Substance: TACROLIMUS
     Route: 048
     Dates: start: 20140630
  76. MEDROL [Suspect]
     Active Substance: METHYLPREDNISOLONE
     Indication: LUPUS NEPHRITIS
     Route: 048
     Dates: end: 20080218
  77. MEDROL [Suspect]
     Active Substance: METHYLPREDNISOLONE
     Route: 048
     Dates: start: 20081127, end: 20120525
  78. MEDROL [Suspect]
     Active Substance: METHYLPREDNISOLONE
     Route: 048
     Dates: start: 20120528, end: 20120624
  79. BONALON [Concomitant]
     Active Substance: ALENDRONATE SODIUM
     Indication: PROPHYLAXIS
     Dosage: 35 MG, EVERY WEEKLY
     Route: 048
     Dates: end: 20121105
  80. ZANTAC [Concomitant]
     Active Substance: RANITIDINE HYDROCHLORIDE
     Indication: PROPHYLAXIS
     Dosage: UNK UNK, UNKNOWN FREQ.
     Route: 048
     Dates: end: 20071216
  81. METHYLPREDNISOLONE. [Concomitant]
     Active Substance: METHYLPREDNISOLONE
     Indication: MENTAL IMPAIRMENT
     Route: 065
     Dates: start: 20130405, end: 20130407
  82. METHYLPREDNISOLONE. [Concomitant]
     Active Substance: METHYLPREDNISOLONE
     Route: 065
     Dates: start: 20140307, end: 20140309
  83. PREDNISOLONE. [Concomitant]
     Active Substance: PREDNISOLONE
     Indication: MENTAL IMPAIRMENT
     Route: 048
     Dates: start: 20140804, end: 20140831
  84. PREDNISOLONE. [Concomitant]
     Active Substance: PREDNISOLONE
     Route: 048
     Dates: start: 20140929, end: 20141109
  85. PREDNISOLONE. [Concomitant]
     Active Substance: PREDNISOLONE
     Route: 048
     Dates: start: 20150727, end: 20150731
  86. PANTOSIN [Concomitant]
     Active Substance: PANTETHINE
     Indication: CONSTIPATION
     Route: 048
     Dates: start: 20140630, end: 20140831
  87. AZUNOL                             /00620101/ [Concomitant]
     Indication: PROPHYLAXIS
     Dosage: UNK UNK, A FEW TIMES DAILY
     Route: 065
     Dates: start: 20140929
  88. QUETIAPINE. [Concomitant]
     Active Substance: QUETIAPINE
     Route: 048
     Dates: start: 20150807, end: 20150818
  89. QUETIAPINE. [Concomitant]
     Active Substance: QUETIAPINE
     Route: 048
  90. TACROLIMUS. [Suspect]
     Active Substance: TACROLIMUS
     Route: 048
     Dates: start: 20120730, end: 20120826
  91. MEDROL [Suspect]
     Active Substance: METHYLPREDNISOLONE
     Route: 048
     Dates: start: 20120526, end: 20120527
  92. MEDROL [Suspect]
     Active Substance: METHYLPREDNISOLONE
     Route: 048
     Dates: start: 20120625, end: 20140309
  93. GASTER [Concomitant]
     Active Substance: FAMOTIDINE
     Indication: PROPHYLAXIS
     Route: 048
     Dates: start: 20071217, end: 20110515
  94. DIOVAN [Concomitant]
     Active Substance: VALSARTAN
     Indication: PROPHYLAXIS
     Route: 048
     Dates: start: 20090416, end: 20090708
  95. DIOVAN [Concomitant]
     Active Substance: VALSARTAN
     Route: 048
     Dates: start: 20101227, end: 201205
  96. RESPLEN [Concomitant]
     Active Substance: EPRAZINONE
     Indication: UPPER RESPIRATORY TRACT INFLAMMATION
     Route: 048
     Dates: start: 20090910, end: 20091007
  97. RESPLEN [Concomitant]
     Active Substance: EPRAZINONE
     Indication: NASOPHARYNGITIS
     Route: 048
     Dates: start: 20100125, end: 20100131
  98. METHYLPREDNISOLONE. [Concomitant]
     Active Substance: METHYLPREDNISOLONE
     Route: 065
     Dates: start: 20140221, end: 20140223
  99. METHYLPREDNISOLONE. [Concomitant]
     Active Substance: METHYLPREDNISOLONE
     Route: 065
     Dates: start: 20140228, end: 20140302
  100. PREDNISOLONE. [Concomitant]
     Active Substance: PREDNISOLONE
     Indication: LUPUS NEPHRITIS
     Route: 048
     Dates: start: 20140310, end: 20140803
  101. PREDNISOLONE. [Concomitant]
     Active Substance: PREDNISOLONE
     Route: 048
     Dates: start: 20141110, end: 20150222
  102. BAKTAR [Concomitant]
     Active Substance: SULFAMETHOXAZOLE\TRIMETHOPRIM
     Indication: PROPHYLAXIS
     Route: 048
     Dates: start: 20140307, end: 20150621
  103. ZYPREXA ZYDIS [Concomitant]
     Active Substance: OLANZAPINE
     Route: 048
     Dates: start: 20150811, end: 20150818
  104. ENDOXAN                            /00021101/ [Concomitant]
     Active Substance: CYCLOPHOSPHAMIDE
     Route: 065
     Dates: start: 20150811, end: 20150811
  105. ENDOXAN                            /00021101/ [Concomitant]
     Active Substance: CYCLOPHOSPHAMIDE
     Route: 065
     Dates: start: 20150916, end: 20150916

REACTIONS (14)
  - Conjunctivitis allergic [Recovered/Resolved]
  - Nasopharyngitis [Recovered/Resolved]
  - Rash [Recovered/Resolved]
  - Musculoskeletal stiffness [Recovered/Resolved]
  - Dermatitis atopic [Recovering/Resolving]
  - Visual field defect [Not Recovered/Not Resolved]
  - Constipation [Recovering/Resolving]
  - Hypertension [Recovering/Resolving]
  - Mental impairment [Recovering/Resolving]
  - Upper respiratory tract inflammation [Recovered/Resolved]
  - Constipation [Recovered/Resolved]
  - Mental impairment [Recovering/Resolving]
  - Diarrhoea [Recovered/Resolved]
  - Arthritis [Recovered/Resolved]

NARRATIVE: CASE EVENT DATE: 20080218
